FAERS Safety Report 23249481 (Version 2)
Quarter: 2024Q1

REPORT INFORMATION
  Report Type: Report from Study
  Country: DE (occurrence: DE)
  Receive Date: 20231201
  Receipt Date: 20240103
  Transmission Date: 20240410
  Serious: Yes (Other)
  Sender: FDA-Public Use
  Company Number: None

PATIENT
  Sex: Female
  Weight: 60 kg

DRUGS (5)
  1. FULVESTRANT [Suspect]
     Active Substance: FULVESTRANT
     Indication: Hormone receptor positive HER2 negative breast cancer
     Dosage: 500 MG, Q4W (DAILY DOSE)
     Route: 030
     Dates: start: 20200427, end: 20230215
  2. KISQALI [Suspect]
     Active Substance: RIBOCICLIB
     Indication: Hormone receptor positive HER2 negative breast cancer
     Dosage: 600 MG, QD (SCHEMA 21 DAYS INTAKE 7 DAYS PAUSE)
     Route: 048
     Dates: start: 20220502, end: 20221115
  3. EXEMESTANE [Concomitant]
     Active Substance: EXEMESTANE
     Indication: Hormone receptor positive HER2 negative breast cancer
     Dosage: 25 MG, QD (ONCE AT NIGHT)
     Route: 048
     Dates: start: 20230421
  4. KISQALI [Suspect]
     Active Substance: RIBOCICLIB
     Indication: Hormone receptor positive HER2 negative breast cancer
     Dosage: 400 MG, QD (SCHEMA 21 DAYS INTAKE 7 DAYS PAUSE)
     Route: 048
     Dates: start: 20221116
  5. KISQALI [Suspect]
     Active Substance: RIBOCICLIB
     Indication: Hormone receptor positive HER2 negative breast cancer
     Dosage: 600 MG, QD (SCHEMA 21 DAYS INTAKE 7 DAYS PAUSE)
     Route: 048
     Dates: start: 20200428, end: 20220405

REACTIONS (5)
  - Pain [Recovered/Resolved]
  - Urinary tract infection [Recovered/Resolved]
  - Radicular pain [Unknown]
  - Sciatica [Recovered/Resolved]
  - Blood creatinine increased [Recovered/Resolved]

NARRATIVE: CASE EVENT DATE: 20200505
